FAERS Safety Report 9002059 (Version 1)
Quarter: 2013Q1

REPORT INFORMATION
  Report Type: Spontaneous
  Country: ES (occurrence: ES)
  Receive Date: 20130107
  Receipt Date: 20130107
  Transmission Date: 20140127
  Serious: Yes (Hospitalization)
  Sender: FDA-Public Use
  Company Number: ES-ELI_LILLY_AND_COMPANY-ES201301000072

PATIENT
  Age: 77 Year
  Sex: Female
  Weight: 78 kg

DRUGS (10)
  1. FORSTEO [Suspect]
     Indication: OSTEOPOROSIS
     Dosage: 20 UG, QD
     Dates: start: 20120422
  2. NEURONTIN [Concomitant]
     Indication: PAIN
     Dosage: UNK, TID
  3. TRIPTIZOL [Concomitant]
     Dosage: UNK, QD
     Route: 048
  4. METFORMIN [Concomitant]
     Indication: DIABETES MELLITUS
     Dosage: UNK, TID
  5. ADIRO [Concomitant]
     Dosage: UNK, QD
     Route: 048
  6. URAPLEX [Concomitant]
     Indication: URINARY INCONTINENCE
     Dosage: UNK, QD
     Route: 048
  7. EUTIROX [Concomitant]
     Indication: HYPOTHYROIDISM
     Dosage: UNK, QD
     Route: 048
  8. DIAZEPAM [Concomitant]
     Dosage: UNK, TID
     Route: 048
  9. TARDYFERON [Concomitant]
     Dosage: UNK, QD
     Route: 048
  10. DUOTRAV [Concomitant]
     Indication: GLAUCOMA
     Dosage: UNK, QD
     Route: 047

REACTIONS (2)
  - Fall [Unknown]
  - Cervical vertebral fracture [Not Recovered/Not Resolved]
